FAERS Safety Report 7212231-6 (Version None)
Quarter: 2010Q4

REPORT INFORMATION
  Report Type: 
  Country: None (occurrence: None)
  Receive Date: 20101229
  Receipt Date: 20101213
  Transmission Date: 20110411
  Serious: Yes (Other)
  Sender: FDA-Public Use
  Company Number: 2010006250

PATIENT
  Age: 12 Year
  Sex: Female

DRUGS (2)
  1. MODAFINIL [Suspect]
     Indication: HYPERSOMNIA
     Dosage: (1/2 GTABLET PER DAY, ORAL), (1/2 TABLET PER DAY), ORAL
     Route: 048
     Dates: start: 20100713, end: 20100701
  2. MODAFINIL [Suspect]
     Indication: HYPERSOMNIA
     Dosage: (1/2 GTABLET PER DAY, ORAL), (1/2 TABLET PER DAY), ORAL
     Route: 048
     Dates: start: 20100101, end: 20101202

REACTIONS (2)
  - DRUG PRESCRIBING ERROR [None]
  - HYPERSENSITIVITY [None]
